FAERS Safety Report 17038710 (Version 1)
Quarter: 2019Q4

REPORT INFORMATION
  Report Type: Report from Study
  Country: US (occurrence: US)
  Receive Date: 20191115
  Receipt Date: 20191115
  Transmission Date: 20200122
  Serious: Yes (Life-Threatening, Hospitalization, Other)
  Sender: FDA-Public Use
  Company Number: NVSC2019US034620

PATIENT
  Age: 13 Year
  Sex: Female

DRUGS (1)
  1. ILARIS [Suspect]
     Active Substance: CANAKINUMAB
     Indication: STILL^S DISEASE
     Dosage: UNK (8 WEEKS)
     Route: 058
     Dates: start: 201905, end: 201910

REACTIONS (9)
  - Cardiac failure [Recovering/Resolving]
  - Limb injury [Recovering/Resolving]
  - Sepsis [Recovering/Resolving]
  - Haemophagocytic lymphohistiocytosis [Recovering/Resolving]
  - Endocarditis [Recovering/Resolving]
  - Lung disorder [Unknown]
  - Pulmonary embolism [Recovering/Resolving]
  - Infection [Recovering/Resolving]
  - Inappropriate schedule of product administration [Unknown]
